FAERS Safety Report 8826981 (Version 6)
Quarter: 2013Q4

REPORT INFORMATION
  Report Type: Spontaneous
  Country: US (occurrence: US)
  Receive Date: 20121008
  Receipt Date: 20131003
  Transmission Date: 20140711
  Serious: Yes (Hospitalization)
  Sender: FDA-Public Use
  Company Number: US-BIOGENIDEC-2012BI042409

PATIENT
  Age: 68 Year
  Sex: Female

DRUGS (3)
  1. TYSABRI [Suspect]
     Indication: MULTIPLE SCLEROSIS
     Route: 042
     Dates: start: 20070917, end: 2011
  2. TYSABRI [Suspect]
     Indication: MULTIPLE SCLEROSIS
     Route: 042
     Dates: start: 2011, end: 201208
  3. TYSABRI [Suspect]
     Indication: MULTIPLE SCLEROSIS
     Route: 042
     Dates: start: 201307

REACTIONS (9)
  - Cholecystectomy [Recovered/Resolved]
  - Clostridium difficile infection [Recovered/Resolved]
  - Intestinal obstruction [Recovered/Resolved]
  - Thrombosis [Not Recovered/Not Resolved]
  - Abdominal pain [Recovered/Resolved]
  - Cholelithiasis [Recovered/Resolved]
  - Off label use [Recovered/Resolved]
  - Urinary tract infection [Not Recovered/Not Resolved]
  - Post procedural complication [Unknown]
